FAERS Safety Report 7651600-7 (Version None)
Quarter: 2011Q3

REPORT INFORMATION
  Report Type: 
  Country: None (occurrence: None)
  Receive Date: 20110802
  Receipt Date: 20110526
  Transmission Date: 20111222
  Serious: Yes (Hospitalization)
  Sender: FDA-Public Use
  Company Number: PHHY2011BE45642

PATIENT
  Sex: Male

DRUGS (13)
  1. CORVATON [Concomitant]
     Dosage: 2 MG, UNK
  2. HYPERLIPIDEMIC FIBRATE [Concomitant]
  3. CLOZAPINE [Suspect]
     Dosage: 25 MG, (4 TABLETS DAILY)
     Dates: start: 20100401
  4. CLOZAPINE [Suspect]
     Dosage: 50 MG, UNK (4 TABLETS DAILY)
     Dates: start: 20101029
  5. DEPAKENE [Concomitant]
     Dosage: 1 G, QD
     Dates: end: 20101001
  6. PHENOBARBITAL TAB [Concomitant]
     Dosage: 250 MG, QD
  7. METOPROLOL SUCCINATE [Concomitant]
  8. ZYPREXA [Concomitant]
  9. FRENACTYL [Concomitant]
  10. D-CURE [Concomitant]
  11. AKINETON [Concomitant]
  12. SEROQUEL [Concomitant]
     Dosage: UNK UKN, UNK
     Dates: end: 20101001
  13. LORAZEPAM [Concomitant]

REACTIONS (4)
  - PANCREATIC DISORDER [None]
  - LIVER DISORDER [None]
  - ANTIPSYCHOTIC DRUG LEVEL BELOW THERAPEUTIC [None]
  - RENAL DISORDER [None]
